FAERS Safety Report 9100342 (Version 1)
Quarter: 2013Q1

REPORT INFORMATION
  Report Type: Spontaneous
  Country: JP (occurrence: JP)
  Receive Date: 20130215
  Receipt Date: 20130215
  Transmission Date: 20140127
  Serious: Yes (Death, Hospitalization)
  Sender: FDA-Public Use
  Company Number: PHHY2013JP009343

PATIENT
  Age: 77 Year
  Sex: Male

DRUGS (2)
  1. TASIGNA [Suspect]
     Indication: BLAST CRISIS IN MYELOGENOUS LEUKAEMIA
     Dosage: 800 MG, DAILY
     Route: 048
     Dates: start: 20130125, end: 20130129
  2. SPRYCEL [Concomitant]
     Dosage: 140 MG, DAILY
     Route: 048
     Dates: start: 20130121, end: 20130125

REACTIONS (3)
  - Extradural haematoma [Fatal]
  - Headache [Fatal]
  - Hemiplegia [Fatal]
